FAERS Safety Report 22270958 (Version 3)
Quarter: 2023Q2

REPORT INFORMATION
  Report Type: Report from Study
  Country: US (occurrence: US)
  Receive Date: 20230501
  Receipt Date: 20230512
  Transmission Date: 20230722
  Serious: Yes (Death)
  Sender: FDA-Public Use
  Company Number: US-002147023-NVSC2023US098944

PATIENT
  Age: 84 Year
  Sex: Female
  Weight: 56.689 kg

DRUGS (24)
  1. LAMPRENE [Suspect]
     Active Substance: CLOFAZIMINE
     Indication: Mycobacterium avium complex infection
     Dosage: 100 MG (2 TABLETS ON MONDAY, WEDNESDAY, FRIDAY)
     Route: 048
     Dates: start: 20200101
  2. LAMPRENE [Suspect]
     Active Substance: CLOFAZIMINE
     Dosage: 2 DOSAGE FORM (THREE TIMES A WEEK)
     Route: 048
     Dates: start: 20200331, end: 20200331
  3. LAMPRENE [Suspect]
     Active Substance: CLOFAZIMINE
     Dosage: 2 DOSAGE FORM (ON MONDAY, WEDNESDAY, FRIDAY)
     Route: 048
     Dates: start: 20211012, end: 20220309
  4. RIFAMPIN [Concomitant]
     Active Substance: RIFAMPIN
     Indication: Product used for unknown indication
     Dosage: 600 MG, Q3W
     Route: 065
  5. AZITHROMYCIN [Concomitant]
     Active Substance: AZITHROMYCIN
     Indication: Product used for unknown indication
     Dosage: 500 MG, Q3W
     Route: 065
  6. AZITHROMYCIN [Concomitant]
     Active Substance: AZITHROMYCIN
     Dosage: 250 MG, QD (1 TABLET MONDAY, WEDNESDAY AND FRIDAY)
     Route: 065
     Dates: start: 20220311
  7. ETHAMBUTOL [Concomitant]
     Active Substance: ETHAMBUTOL HYDROCHLORIDE
     Indication: Product used for unknown indication
     Dosage: 800 MG, Q3W
     Route: 065
  8. ETHAMBUTOL [Concomitant]
     Active Substance: ETHAMBUTOL HYDROCHLORIDE
     Dosage: 2 DOSAGE FORM (STRENGTH: 100 MG, THREE DAYS A WEEK)
     Route: 048
     Dates: start: 20220323
  9. ETHAMBUTOL [Concomitant]
     Active Substance: ETHAMBUTOL HYDROCHLORIDE
     Dosage: 2 DOSAGE FORM, Q3W (STRENGTH: 400 MG, THREE DAYS A WEEK)
     Route: 048
     Dates: start: 20220323
  10. ALBUTEROL SULFATE [Concomitant]
     Active Substance: ALBUTEROL SULFATE
     Indication: Dyspnoea
     Dosage: UNK UNK, PRN  (90 MCG/ ACTUATION AEROSOL INHALER, INHALE 2 PUFF BY MOUTH EVERY 4 HOUR)
     Dates: start: 20220306
  11. AMLODIPINE [Concomitant]
     Active Substance: AMLODIPINE BESYLATE
     Indication: Product used for unknown indication
     Dosage: 1 DOSAGE FORM, QD
     Route: 048
     Dates: start: 20220220
  12. DIETARY SUPPLEMENT [Concomitant]
     Active Substance: DIETARY SUPPLEMENT
     Indication: Product used for unknown indication
     Dosage: 1 DOSAGE FORM, QD
     Route: 048
     Dates: start: 20200707
  13. DORZOLAMIDE [Concomitant]
     Active Substance: DORZOLAMIDE
     Indication: Product used for unknown indication
     Dosage: 1 DRP, BID (IN BOTH EYES AT MORNING AND NIGHT)
     Route: 065
     Dates: start: 20220306
  14. TIMOLOL [Concomitant]
     Active Substance: TIMOLOL
     Indication: Product used for unknown indication
     Dosage: 1 DRP, BID (IN BOTH EYES AT MORNING AND NIGHT)
     Route: 065
     Dates: start: 20220306
  15. FUROSEMIDE [Concomitant]
     Active Substance: FUROSEMIDE
     Indication: Swelling
     Dosage: UNK (TAKE HALF TO 1 TABLET EVERY 24 HOURS AS NEEDED)
     Route: 048
     Dates: start: 20220323
  16. LACTOBACILLUS ACIDOPHILUS [Concomitant]
     Active Substance: LACTOBACILLUS ACIDOPHILUS
     Indication: Product used for unknown indication
     Dosage: 1 DOSAGE FORM, TID (STRENGTH: 2 BILLION CELLS)
     Route: 065
     Dates: start: 20201103
  17. LATANOPROST [Concomitant]
     Active Substance: LATANOPROST
     Indication: Product used for unknown indication
     Dosage: 1 DOSAGE FORM (NIGHTLY, IN BOTH EYES)
     Route: 065
     Dates: start: 20220126
  18. LUTEIN [Concomitant]
     Active Substance: LUTEIN
     Indication: Product used for unknown indication
     Dosage: 1 DOSAGE FORM
     Route: 048
     Dates: start: 20211214
  19. METOPROLOL SUCCINATE [Concomitant]
     Active Substance: METOPROLOL SUCCINATE
     Indication: Product used for unknown indication
     Dosage: 1 DOSAGE FORM, QD (EXTENDED RELEASE 24 HR)
     Route: 048
     Dates: start: 20220214
  20. MONTELUKAST [Concomitant]
     Active Substance: MONTELUKAST SODIUM
     Indication: Product used for unknown indication
     Dosage: 1 DOSAGE FORM, QD (EVERY EVENING)
     Route: 048
     Dates: start: 20220323
  21. OMEPRAZOLE [Concomitant]
     Active Substance: OMEPRAZOLE
     Indication: Product used for unknown indication
     Dosage: 1 DOSAGE FORM, PRN (DELAYED RELEASE)
     Route: 048
     Dates: start: 20210330
  22. PREDNISONE [Concomitant]
     Active Substance: PREDNISONE
     Indication: Product used for unknown indication
     Dosage: 1 DOSAGE FORM, QD
     Route: 048
     Dates: start: 20220223
  23. SYNTHROID [Concomitant]
     Active Substance: LEVOTHYROXINE SODIUM
     Indication: Product used for unknown indication
     Dosage: 1 DOSAGE FORM, QD (STRENGTH: 75 MCG)
     Route: 048
     Dates: start: 20220306
  24. ASPIRIN [Concomitant]
     Active Substance: ASPIRIN
     Indication: Product used for unknown indication
     Dosage: UNK
     Route: 065

REACTIONS (7)
  - Respiratory failure [Fatal]
  - Pneumonia [Fatal]
  - Drug intolerance [Unknown]
  - Cough [Unknown]
  - Productive cough [Unknown]
  - Staphylococcal infection [Unknown]
  - Increased appetite [Unknown]

NARRATIVE: CASE EVENT DATE: 20211017
